FAERS Safety Report 24195924 (Version 1)
Quarter: 2024Q3

REPORT INFORMATION
  Report Type: Report from Study
  Country: BR (occurrence: BR)
  Receive Date: 20240809
  Receipt Date: 20240809
  Transmission Date: 20241016
  Serious: Yes (Hospitalization, Other)
  Sender: ABBVIE
  Company Number: BR-ABBVIE-5871498

PATIENT
  Age: 63 Year
  Sex: Female
  Weight: 100 kg

DRUGS (1)
  1. SKYRIZI [Suspect]
     Active Substance: RISANKIZUMAB-RZAA
     Indication: Psoriasis
     Route: 042
     Dates: start: 20210916

REACTIONS (3)
  - Femur fracture [Recovering/Resolving]
  - Osteoporosis [Unknown]
  - Fall [Recovering/Resolving]

NARRATIVE: CASE EVENT DATE: 20240401
